FAERS Safety Report 4616472-3 (Version None)
Quarter: 2005Q1

REPORT INFORMATION
  Report Type: 
  Country: None (occurrence: None)
  Receive Date: 20050318
  Receipt Date: 20050308
  Transmission Date: 20050727
  Serious: Yes (Other)
  Sender: FDA-Public Use
  Company Number: HQWYE953518MAR04

PATIENT
  Age: 36 Year
  Sex: Female

DRUGS (13)
  1. EFFEXOR [Suspect]
     Indication: ASTHENIA
     Dosage: 75 MG (FREQUENCY UNKNOWN), ORAL
     Route: 048
     Dates: start: 20000201
  2. EFFEXOR [Suspect]
     Indication: DEPRESSION
     Dosage: 75 MG (FREQUENCY UNKNOWN), ORAL
     Route: 048
     Dates: start: 20000201
  3. EFFEXOR [Suspect]
     Indication: MOOD SWINGS
     Dosage: 75 MG (FREQUENCY UNKNOWN), ORAL
     Route: 048
     Dates: start: 20000201
  4. EFFEXOR [Suspect]
     Indication: PREMENSTRUAL SYNDROME
     Dosage: 75 MG (FREQUENCY UNKNOWN), ORAL
     Route: 048
     Dates: start: 20000201
  5. EFFEXOR XR [Suspect]
     Indication: ASTHENIA
     Dosage: SEE IMAGE
     Route: 048
     Dates: start: 20020815, end: 20030630
  6. EFFEXOR XR [Suspect]
     Indication: DEPRESSION
     Dosage: SEE IMAGE
     Route: 048
     Dates: start: 20020815, end: 20030630
  7. EFFEXOR XR [Suspect]
     Indication: MOOD SWINGS
     Dosage: SEE IMAGE
     Route: 048
     Dates: start: 20020815, end: 20030630
  8. EFFEXOR XR [Suspect]
     Indication: PREMENSTRUAL SYNDROME
     Dosage: SEE IMAGE
     Route: 048
     Dates: start: 20020815, end: 20030630
  9. EFFEXOR XR [Suspect]
     Indication: ASTHENIA
     Dosage: SEE IMAGE
     Route: 048
     Dates: start: 20030701
  10. EFFEXOR XR [Suspect]
     Indication: DEPRESSION
     Dosage: SEE IMAGE
     Route: 048
     Dates: start: 20030701
  11. EFFEXOR XR [Suspect]
     Indication: MOOD SWINGS
     Dosage: SEE IMAGE
     Route: 048
     Dates: start: 20030701
  12. EFFEXOR XR [Suspect]
     Indication: PREMENSTRUAL SYNDROME
     Dosage: SEE IMAGE
     Route: 048
     Dates: start: 20030701
  13. ESTROGENS (ESTROGENS) [Concomitant]

REACTIONS (14)
  - ABNORMAL BEHAVIOUR [None]
  - APATHY [None]
  - BLOOD CHOLESTEROL INCREASED [None]
  - BRONCHITIS [None]
  - DERMATITIS CONTACT [None]
  - LOW DENSITY LIPOPROTEIN INCREASED [None]
  - PHARYNGITIS STREPTOCOCCAL [None]
  - SELF ESTEEM DECREASED [None]
  - SINUSITIS [None]
  - TENSION HEADACHE [None]
  - TREATMENT NONCOMPLIANCE [None]
  - URINARY TRACT INFECTION [None]
  - VAGINITIS BACTERIAL [None]
  - VIRAL INFECTION [None]
